FAERS Safety Report 23499952 (Version 1)
Quarter: 2024Q1

REPORT INFORMATION
  Report Type: Report from Study
  Country: GB (occurrence: GB)
  Receive Date: 20240208
  Receipt Date: 20240208
  Transmission Date: 20240410
  Serious: Yes (Other)
  Sender: FDA-Public Use
  Company Number: GB-Merck Healthcare KGaA-2023497290

PATIENT
  Sex: Male

DRUGS (4)
  1. MAVENCLAD [Suspect]
     Active Substance: CLADRIBINE
     Indication: Multiple sclerosis
     Dosage: YEAR ONE WEEK ONE THERAPY: TWO TABLETS ON DAYS 1 TO 2 AND ONE TABLET ON DAYS 3 TO 5.
     Route: 048
     Dates: start: 20220912
  2. MAVENCLAD [Suspect]
     Active Substance: CLADRIBINE
     Dosage: YEAR ONE WEEK TWO THERAPY: TWO TABLETS ON DAY 1 AND ONE TABLET ON DAYS 2 TO 5.
     Route: 048
     Dates: start: 20221010
  3. MAVENCLAD [Suspect]
     Active Substance: CLADRIBINE
     Dosage: YEAR TWO WEEK ONE THERAPY
     Route: 048
     Dates: start: 20231030
  4. MAVENCLAD [Suspect]
     Active Substance: CLADRIBINE
     Dosage: YEAR TWO WEEK TWO THERAPY: TWO TABLETS ON DAY 1 AND ONE TABLET ON DAYS 2 TO 5.
     Route: 048
     Dates: start: 20231127

REACTIONS (5)
  - Abdominal discomfort [Unknown]
  - Malaise [Unknown]
  - Occult blood positive [Unknown]
  - Colostomy [Unknown]
  - Pruritus [Unknown]
